FAERS Safety Report 13078581 (Version 2)
Quarter: 2017Q4

REPORT INFORMATION
  Report Type: Other
  Country: CA (occurrence: CA)
  Receive Date: 20170102
  Receipt Date: 20171009
  Transmission Date: 20180320
  Serious: Yes (Hospitalization, Other)
  Sender: FDA-Public Use
  Company Number: CA-APOTEX-2016AP016071

PATIENT
  Age: 47 Year
  Sex: Male

DRUGS (6)
  1. APO-CYCLOSPORINE ORAL SOLUTION [Suspect]
     Active Substance: CYCLOSPORINE
     Indication: PRODUCT USED FOR UNKNOWN INDICATION
     Dosage: UNK
     Route: 065
  2. TACROLIMUS. [Suspect]
     Active Substance: TACROLIMUS
     Indication: PRODUCT USED FOR UNKNOWN INDICATION
     Dosage: 1 MG, BID
     Route: 065
  3. APO-NIFED PA [Suspect]
     Active Substance: NIFEDIPINE
     Indication: PRODUCT USED FOR UNKNOWN INDICATION
     Dosage: 30 MG, QD
     Route: 065
  4. ENBREL [Suspect]
     Active Substance: ETANERCEPT
     Indication: RHEUMATOID ARTHRITIS
     Dosage: 50 MG, Q.WK.
     Route: 058
  5. TACROLIMUS. [Suspect]
     Active Substance: TACROLIMUS
     Dosage: 2 MG, BID
     Route: 065
  6. APO PREDNISONE TAB 5MG [Suspect]
     Active Substance: PREDNISONE
     Indication: PRODUCT USED FOR UNKNOWN INDICATION
     Dosage: 5 MG, QD
     Route: 065

REACTIONS (40)
  - Gastrooesophageal reflux disease [Unknown]
  - Vasculitis [Unknown]
  - Infection [Unknown]
  - Dyspnoea [Unknown]
  - Antinuclear antibody positive [Unknown]
  - Hypoaesthesia [Unknown]
  - Raynaud^s phenomenon [Unknown]
  - Tenderness [Unknown]
  - Cardiac failure congestive [Unknown]
  - Renal impairment [Unknown]
  - Infusion related reaction [Unknown]
  - Osteoarthritis [Unknown]
  - Arrhythmia [Unknown]
  - Muscular weakness [Unknown]
  - Back pain [Unknown]
  - Cardiomyopathy [Unknown]
  - Sclerodactylia [Unknown]
  - Skin ulcer [Unknown]
  - Ventricular dysfunction [Unknown]
  - Photosensitivity reaction [Unknown]
  - Depression [Unknown]
  - Intervertebral disc protrusion [Unknown]
  - Mixed connective tissue disease [Unknown]
  - Scar [Unknown]
  - Scoliosis [Unknown]
  - Sensory loss [Unknown]
  - Impaired healing [Unknown]
  - Blood creatinine increased [Unknown]
  - Scleroderma [Unknown]
  - Skin hypertrophy [Unknown]
  - Telangiectasia [Unknown]
  - Dry mouth [Unknown]
  - Arthritis [Unknown]
  - Gait disturbance [Unknown]
  - Onychomycosis [Unknown]
  - Skin sensitisation [Unknown]
  - Dry eye [Unknown]
  - Kyphosis [Unknown]
  - Vertebral foraminal stenosis [Unknown]
  - Pain [Unknown]
